FAERS Safety Report 6202802-8 (Version None)
Quarter: 2009Q2

REPORT INFORMATION
  Report Type: 
  Country: None (occurrence: None)
  Receive Date: 20090519
  Receipt Date: 20090511
  Transmission Date: 20091009
  Serious: Yes (Hospitalization, Other)
  Sender: FDA-Public Use
  Company Number: 2009JP001634

PATIENT
  Age: 78 Year
  Sex: Male

DRUGS (3)
  1. PROTOPIC [Suspect]
     Indication: DERMATITIS ATOPIC
     Dosage: 0.1%, TOPICAL
     Route: 061
     Dates: start: 20040601, end: 20090317
  2. PASTARON (GLYCYRRHIZIC ACID DIPOTASSIUM, TOCOPHERYL ACETATE) [Concomitant]
  3. PROPADERM [Concomitant]

REACTIONS (2)
  - LYMPHOMA [None]
  - RASH [None]
